FAERS Safety Report 24133473 (Version 1)
Quarter: 2024Q3

REPORT INFORMATION
  Report Type: Spontaneous
  Country: GB (occurrence: GB)
  Receive Date: 20240724
  Receipt Date: 20240724
  Transmission Date: 20241017
  Serious: Yes (Life-Threatening, Disabling, Other)
  Sender: PFIZER
  Company Number: None

PATIENT
  Age: 42 Year
  Sex: Female

DRUGS (1)
  1. DEPO-PROVERA [Suspect]
     Active Substance: MEDROXYPROGESTERONE ACETATE
     Dosage: UNK

REACTIONS (3)
  - Pruritus [Unknown]
  - Dermatitis allergic [Recovered/Resolved]
  - Loss of consciousness [Unknown]
